FAERS Safety Report 8001966-3 (Version None)
Quarter: 2011Q4

REPORT INFORMATION
  Report Type: 
  Country: None (occurrence: None)
  Receive Date: 20111222
  Receipt Date: 20111215
  Transmission Date: 20120403
  Serious: Yes (Hospitalization)
  Sender: FDA-Public Use
  Company Number: US-BAYER-2011-028547

PATIENT
  Age: 20 Year
  Sex: Female

DRUGS (3)
  1. ZITHROMAX [Concomitant]
     Dosage: 250 MG, UNK
     Dates: start: 20090807
  2. ZITHROMAX [Concomitant]
     Dosage: 250 MG, UNK
     Dates: start: 20091214
  3. YAZ [Suspect]
     Dosage: UNK
     Dates: start: 20090501, end: 20091201

REACTIONS (4)
  - PULMONARY EMBOLISM [None]
  - DEEP VEIN THROMBOSIS [None]
  - INJURY [None]
  - PAIN [None]
